FAERS Safety Report 24177137 (Version 1)
Quarter: 2024Q3

REPORT INFORMATION
  Report Type: Spontaneous
  Country: US (occurrence: US)
  Receive Date: 20240806
  Receipt Date: 20240806
  Transmission Date: 20241017
  Serious: Yes (Other)
  Sender: AMNEAL
  Company Number: US-AMNEAL-2024-AMRX-00606

PATIENT
  Sex: Male
  Weight: 61.224 kg

DRUGS (3)
  1. BACLOFEN [Suspect]
     Active Substance: BACLOFEN
     Indication: Product used for unknown indication
     Dosage: 200.1 MCG/DAY BASE RATE WITH 6 BOLUS OF 167.0 MCG
     Route: 037
  2. BACLOFEN [Suspect]
     Active Substance: BACLOFEN
     Dosage: 1304 MCG PER DAY
     Route: 037
  3. BACLOFEN [Suspect]
     Active Substance: BACLOFEN
     Dosage: 1158 MCG PER DAY
     Route: 037

REACTIONS (3)
  - Drug withdrawal syndrome [Unknown]
  - Device related infection [Unknown]
  - Device failure [Unknown]
